FAERS Safety Report 14416740 (Version 1)
Quarter: 2018Q1

REPORT INFORMATION
  Report Type: Spontaneous
  Country: US (occurrence: US)
  Receive Date: 20180119
  Receipt Date: 20180119
  Transmission Date: 20180509
  Serious: Yes (Hospitalization)
  Sender: FDA-Public Use
  Company Number: None

PATIENT
  Age: 84 Year
  Sex: Male

DRUGS (12)
  1. ASCORBIC ACID. [Concomitant]
     Active Substance: ASCORBIC ACID
  2. FLUTICASONE. [Concomitant]
     Active Substance: FLUTICASONE
  3. VITAMIN E [Concomitant]
     Active Substance: .ALPHA.-TOCOPHEROL
  4. COD LIVER OIL [Concomitant]
     Active Substance: COD LIVER OIL
  5. SALMETEROL [Concomitant]
     Active Substance: SALMETEROL
  6. VORICONAZOLE. [Suspect]
     Active Substance: VORICONAZOLE
     Route: 048
  7. AZITHROMYCIN ANHYDROUS. [Concomitant]
     Active Substance: AZITHROMYCIN ANHYDROUS
  8. CHOLECALCIFEROL [Concomitant]
     Active Substance: CHOLECALCIFEROL
  9. ETHAMBUTOL [Concomitant]
     Active Substance: ETHAMBUTOL HYDROCHLORIDE
  10. BENZONATATE. [Concomitant]
     Active Substance: BENZONATATE
  11. RIFAMPIN. [Suspect]
     Active Substance: RIFAMPIN
     Route: 048
     Dates: start: 20151201, end: 20170810
  12. TIOTROPIUM [Concomitant]
     Active Substance: TIOTROPIUM

REACTIONS (8)
  - Haemoptysis [None]
  - Drug level decreased [None]
  - Therapy cessation [None]
  - Bronchopulmonary aspergillosis [None]
  - Mycobacterium avium complex infection [None]
  - Drug interaction [None]
  - Dyspnoea [None]
  - Condition aggravated [None]

NARRATIVE: CASE EVENT DATE: 20170801
